FAERS Safety Report 4770940-2 (Version None)
Quarter: 2005Q3

REPORT INFORMATION
  Report Type: 
  Country: None (occurrence: None)
  Receive Date: 20050914
  Receipt Date: 20050830
  Transmission Date: 20060218
  Serious: Yes (Hospitalization)
  Sender: FDA-Public Use
  Company Number: 05-02-06261

PATIENT
  Age: 69 Year
  Sex: Male

DRUGS (5)
  1. CETUXIMAB (CETUXIMAB) [Suspect]
     Indication: COLORECTAL CANCER METASTATIC
     Dosage: SEE IMAGE
     Route: 042
     Dates: start: 20050825, end: 20050825
  2. CETUXIMAB (CETUXIMAB) [Suspect]
     Indication: COLORECTAL CANCER METASTATIC
     Dosage: SEE IMAGE
     Route: 042
     Dates: start: 20050712
  3. IRINOTECAN (IRINOTECAN) [Suspect]
     Indication: COLORECTAL CANCER METASTATIC
     Dosage: 540 MG I.V.
     Route: 042
     Dates: start: 20050712, end: 20050811
  4. WARFARIN SODIUM [Concomitant]
  5. LANSOPRAZOLE [Concomitant]

REACTIONS (7)
  - CATHETER RELATED INFECTION [None]
  - CEREBRAL ARTERY EMBOLISM [None]
  - CEREBROVASCULAR ACCIDENT [None]
  - ENDOCARDITIS [None]
  - FALL [None]
  - STAPHYLOCOCCAL INFECTION [None]
  - TACHYCARDIA [None]
